FAERS Safety Report 12722895 (Version 1)
Quarter: 2016Q3

REPORT INFORMATION
  Report Type: Spontaneous
  Country: CN (occurrence: CN)
  Receive Date: 20160907
  Receipt Date: 20160907
  Transmission Date: 20161109
  Serious: Yes (Other)
  Sender: FDA-Public Use
  Company Number: CN-JNJFOC-20160904745

PATIENT
  Sex: Male
  Weight: 3.2 kg

DRUGS (2)
  1. IBUPROFEN. [Suspect]
     Active Substance: IBUPROFEN
     Indication: PATENT DUCTUS ARTERIOSUS
     Dosage: AT 24 HOUR
     Route: 065
  2. IBUPROFEN. [Suspect]
     Active Substance: IBUPROFEN
     Indication: PATENT DUCTUS ARTERIOSUS
     Dosage: AT 48 HR
     Route: 065

REACTIONS (4)
  - Product use issue [Recovering/Resolving]
  - Blood creatinine increased [Recovering/Resolving]
  - Off label use [Recovering/Resolving]
  - Platelet count decreased [Recovering/Resolving]
